FAERS Safety Report 9767585 (Version 2)
Quarter: 2013Q4

REPORT INFORMATION
  Report Type: Report from Study
  Country: CA (occurrence: CA)
  Receive Date: 20131217
  Receipt Date: 20131218
  Transmission Date: 20140711
  Serious: Yes (Other)
  Sender: FDA-Public Use
  Company Number: PHHY2013CA147018

PATIENT
  Age: 86 Year
  Sex: Female
  Weight: 65 kg

DRUGS (9)
  1. ACLASTA [Suspect]
     Indication: OSTEOPOROSIS
     Dosage: 5 MG/100ML, UNK
     Route: 042
     Dates: start: 20121126
  2. ACLASTA [Suspect]
     Dosage: 5 MG/100ML, UNK
     Route: 042
     Dates: start: 20131212
  3. ATIVAN [Concomitant]
     Dosage: 1 MG TID PRN
  4. ZOPICLONE [Concomitant]
     Dosage: UNK UKN, UNK
  5. METHOTREXATE [Concomitant]
     Dosage: 22.5 MG, QW
  6. FOLIC ACID [Concomitant]
     Dosage: UNK UKN, UNK
  7. VITAMIN B12 [Concomitant]
     Dosage: UNK UKN, UNK
  8. VENLAFAXINE [Concomitant]
     Dosage: UNK UKN, UNK
  9. PANTO [Concomitant]
     Dosage: UNK UKN, UNK

REACTIONS (3)
  - Basal cell carcinoma [Recovering/Resolving]
  - Musculoskeletal pain [Recovering/Resolving]
  - Dry skin [Unknown]
